FAERS Safety Report 8965788 (Version 1)
Quarter: 2012Q4

REPORT INFORMATION
  Report Type: Report from Study
  Country: HU (occurrence: HU)
  Receive Date: 20121214
  Receipt Date: 20121214
  Transmission Date: 20130627
  Serious: Yes (Disabling)
  Sender: FDA-Public Use
  Company Number: HU-ABBOTT-12P-076-1018485-00

PATIENT
  Age: 25 Year
  Sex: Male
  Weight: 62 kg

DRUGS (4)
  1. HUMIRA [Suspect]
     Indication: ANKYLOSING SPONDYLITIS
     Route: 058
     Dates: start: 20120405, end: 20120622
  2. DIFFERENT VITAMINS [Concomitant]
     Indication: PRODUCT USED FOR UNKNOWN INDICATION
     Route: 048
  3. SUMETROLIM [Concomitant]
     Indication: DERMATITIS ATOPIC
     Route: 048
  4. ALENDRON ACID [Concomitant]
     Indication: PRODUCT USED FOR UNKNOWN INDICATION

REACTIONS (2)
  - Skin wound [Not Recovered/Not Resolved]
  - Dermatitis atopic [Not Recovered/Not Resolved]
